FAERS Safety Report 24212831 (Version 2)
Quarter: 2024Q4

REPORT INFORMATION
  Report Type: Report from Study
  Country: BR (occurrence: BR)
  Receive Date: 20240815
  Receipt Date: 20241121
  Transmission Date: 20250115
  Serious: Yes (Other)
  Sender: TAKEDA
  Company Number: BR-TAKEDA-2022TUS066363

PATIENT
  Age: 63 Year
  Sex: Female

DRUGS (6)
  1. VEDOLIZUMAB [Suspect]
     Active Substance: VEDOLIZUMAB
     Indication: Crohn^s disease
     Dosage: 300 MILLIGRAM
  2. VITAMIN D [Concomitant]
     Active Substance: VITAMIN D NOS
     Dosage: UNK
  3. CARDO MARIANO [Concomitant]
     Dosage: UNK
  4. LOSARTAN POTASSIUM [Concomitant]
     Active Substance: LOSARTAN POTASSIUM
     Indication: Blood pressure management
     Dosage: 50 MILLIGRAM, QD
  5. HYDROCHLOROTHIAZIDE [Concomitant]
     Active Substance: HYDROCHLOROTHIAZIDE
     Indication: Blood pressure management
     Dosage: 25 MILLIGRAM, QD
  6. PIOGLITAZONE HYDROCHLORIDE [Concomitant]
     Active Substance: PIOGLITAZONE HYDROCHLORIDE
     Dosage: UNK

REACTIONS (17)
  - Nasal cavity cancer [Recovered/Resolved]
  - Intestinal stenosis [Unknown]
  - Hepatomegaly [Unknown]
  - Suspected COVID-19 [Unknown]
  - Fistula [Unknown]
  - Inappropriate schedule of product administration [Not Recovered/Not Resolved]
  - Weight increased [Unknown]
  - Gastrointestinal inflammation [Recovering/Resolving]
  - Product dose omission issue [Unknown]
  - Anxiety [Unknown]
  - Product availability issue [Unknown]
  - Aphonia [Unknown]
  - Rhinitis [Recovered/Resolved]
  - Dysphonia [Recovering/Resolving]
  - Diarrhoea [Not Recovered/Not Resolved]
  - Limb injury [Not Recovered/Not Resolved]
  - Cough [Recovering/Resolving]

NARRATIVE: CASE EVENT DATE: 20220301
